FAERS Safety Report 20560575 (Version 2)
Quarter: 2022Q1

REPORT INFORMATION
  Report Type: Spontaneous
  Country: US (occurrence: US)
  Receive Date: 20220307
  Receipt Date: 20220322
  Transmission Date: 20220424
  Serious: No
  Sender: FDA-Public Use
  Company Number: US-GRANULES-US-2022GRASPO00035

PATIENT

DRUGS (1)
  1. METFORMIN HYDROCHLORIDE [Suspect]
     Active Substance: METFORMIN HYDROCHLORIDE
     Indication: Product used for unknown indication
     Route: 065

REACTIONS (10)
  - Feeling abnormal [Unknown]
  - Blood glucose increased [Unknown]
  - Weight increased [Unknown]
  - Fatigue [Unknown]
  - Myalgia [Unknown]
  - Nausea [Unknown]
  - Abdominal discomfort [Unknown]
  - Malaise [Unknown]
  - Product physical issue [Unknown]
  - Product substitution issue [Unknown]
